FAERS Safety Report 13476364 (Version 1)
Quarter: 2017Q2

REPORT INFORMATION
  Report Type: Spontaneous
  Country: US (occurrence: US)
  Receive Date: 20170424
  Receipt Date: 20170424
  Transmission Date: 20170830
  Serious: Yes (Disabling)
  Sender: FDA-Public Use
  Company Number: None

PATIENT
  Age: 80 Year
  Sex: Female
  Weight: 96.75 kg

DRUGS (11)
  1. MELATONIN [Concomitant]
     Active Substance: MELATONIN
  2. MUILTI-VITAMIN + MINERAL [Concomitant]
  3. TURMERIC/CURCUMIN [Concomitant]
  4. CHAMOMILE TEA [Concomitant]
     Active Substance: MATRICARIA RECUTITA
  5. MUCUS RELIEF [Suspect]
     Active Substance: GUAIFENESIN
     Indication: BRONCHITIS
     Dosage: ?          QUANTITY:1 TABLET(S);?
     Route: 048
  6. MUCUS RELIEF [Suspect]
     Active Substance: GUAIFENESIN
     Indication: COUGH
     Dosage: ?          QUANTITY:1 TABLET(S);?
     Route: 048
  7. CALCITONIN [Concomitant]
     Active Substance: CALCITONIN
  8. ATORVASTATIN [Concomitant]
     Active Substance: ATORVASTATIN
  9. BIOTIN [Concomitant]
     Active Substance: BIOTIN
  10. LACTASE [Concomitant]
     Active Substance: LACTASE
  11. LEVYTHYROXIN [Concomitant]

REACTIONS (2)
  - Middle insomnia [None]
  - Dry mouth [None]

NARRATIVE: CASE EVENT DATE: 20170418
